FAERS Safety Report 9231869 (Version 1)
Quarter: 2013Q2

REPORT INFORMATION
  Report Type: Spontaneous
  Country: US (occurrence: US)
  Receive Date: 20130415
  Receipt Date: 20130415
  Transmission Date: 20140414
  Serious: Yes (Death)
  Sender: FDA-Public Use
  Company Number: US-COVIDIEN/TYCO HEALTHCARE/MALLINCKRODT-T201204627

PATIENT
  Age: 44 Year
  Sex: Male
  Weight: 134 kg

DRUGS (4)
  1. FENTANYL CITRATE [Suspect]
     Dosage: UNK
  2. METHADOSE [Suspect]
     Dosage: UNK
  3. METHAMPHETAMINE [Suspect]
     Dosage: UNK
  4. BENZODIAZEPINE DERIVATIVES [Suspect]
     Dosage: UNK

REACTIONS (1)
  - Drug abuse [Fatal]
